FAERS Safety Report 9405904 (Version 2)
Quarter: 2014Q1

REPORT INFORMATION
  Report Type: Spontaneous
  Country: US (occurrence: US)
  Receive Date: 20130717
  Receipt Date: 20140103
  Transmission Date: 20141002
  Serious: Yes (Death, Hospitalization)
  Sender: FDA-Public Use
  Company Number: US-B.I. PHARMACEUTICALS,INC./RIDGEFIELD-2013-BI-20553BP

PATIENT
  Age: 88 Year
  Sex: Female
  Weight: 52.16 kg

DRUGS (6)
  1. PRADAXA [Suspect]
     Indication: ATRIAL FIBRILLATION
     Dates: start: 20110207, end: 20110625
  2. LASIX [Concomitant]
     Dosage: 20 MG
     Dates: start: 201010, end: 201106
  3. CARDIZEM [Concomitant]
     Dosage: 240 MG
     Dates: start: 201010, end: 201106
  4. VITAMIN D12 [Concomitant]
     Dosage: 1000 U
     Dates: start: 200910, end: 201106
  5. DIGOXIN [Concomitant]
     Dosage: 0.125 MG
     Dates: start: 201011, end: 201106
  6. MICARDIS [Concomitant]
     Dates: start: 200505, end: 201106

REACTIONS (1)
  - Gastrointestinal haemorrhage [Fatal]
